FAERS Safety Report 6527105-3 (Version None)
Quarter: 2009Q4

REPORT INFORMATION
  Report Type: 
  Country: None (occurrence: None)
  Receive Date: 20091222
  Receipt Date: 20091020
  Transmission Date: 20100525
  Serious: No
  Sender: FDA-Public Use
  Company Number: ALL1-2009-03285

PATIENT
  Age: 46 Year
  Sex: Male
  Weight: 83.9 kg

DRUGS (4)
  1. VYVANSE [Suspect]
     Indication: DEPRESSION
     Dosage: 50; 20 MG, 1X/DAY:QD, ORAL
     Route: 048
     Dates: start: 20090701, end: 20091006
  2. VYVANSE [Suspect]
     Indication: DEPRESSION
     Dosage: 50; 20 MG, 1X/DAY:QD, ORAL
     Route: 048
     Dates: start: 20091006
  3. OMEGA-3 OIL /00931501/ (DOCOSAHEXANOIC ACID, EICOSAPENTAENOIC ACID) [Concomitant]
  4. ASPIRIN [Concomitant]

REACTIONS (5)
  - DRY MOUTH [None]
  - FEELING HOT [None]
  - INSOMNIA [None]
  - MUSCLE TIGHTNESS [None]
  - OFF LABEL USE [None]
